FAERS Safety Report 12631162 (Version 2)
Quarter: 2016Q3

REPORT INFORMATION
  Report Type: Spontaneous
  Country: US (occurrence: US)
  Receive Date: 20160808
  Receipt Date: 20160808
  Transmission Date: 20161109
  Serious: No
  Sender: FDA-Public Use
  Company Number: US-BEH-2015052532

PATIENT
  Sex: Female
  Weight: 112 kg

DRUGS (47)
  1. ADVAIR HFA [Concomitant]
     Active Substance: FLUTICASONE PROPIONATE\SALMETEROL XINAFOATE
  2. ESTRADIOL. [Concomitant]
     Active Substance: ESTRADIOL
  3. ALBUTEROL SULFATE. [Concomitant]
     Active Substance: ALBUTEROL SULFATE
  4. SONATA [Concomitant]
     Active Substance: ZALEPLON
  5. LASIX [Concomitant]
     Active Substance: FUROSEMIDE
  6. ALLEGRA [Concomitant]
     Active Substance: FEXOFENADINE HYDROCHLORIDE
  7. PRILOSEC [Concomitant]
     Active Substance: OMEPRAZOLE MAGNESIUM
  8. POTASSIUM CITRATE. [Concomitant]
     Active Substance: POTASSIUM CITRATE
  9. HIZENTRA [Suspect]
     Active Substance: HUMAN IMMUNOGLOBULIN G
     Dosage: AS DIRECTED, 2 GM 10 ML VIAL
     Route: 058
  10. EPIPEN [Concomitant]
     Active Substance: EPINEPHRINE
     Indication: ANAPHYLACTIC REACTION
  11. CLONAZEPAM. [Concomitant]
     Active Substance: CLONAZEPAM
  12. PULMICORT TURBUHALER [Concomitant]
     Active Substance: BUDESONIDE
  13. MUCINEX [Concomitant]
     Active Substance: GUAIFENESIN
  14. ZOFRAN [Concomitant]
     Active Substance: ONDANSETRON HYDROCHLORIDE
  15. SENNA DOCUSATE [Concomitant]
  16. PULMICORT TURBUHALER [Concomitant]
     Active Substance: BUDESONIDE
  17. MULTIVITAMINS [Concomitant]
     Active Substance: VITAMINS
  18. DIPHENHYDRAMINE. [Concomitant]
     Active Substance: DIPHENHYDRAMINE
     Indication: ANAPHYLACTIC REACTION
  19. LEVOTHYROXINE. [Concomitant]
     Active Substance: LEVOTHYROXINE
  20. OMEPRAZOLE. [Concomitant]
     Active Substance: OMEPRAZOLE
  21. CALCIUM CARBONATE. [Concomitant]
     Active Substance: CALCIUM CARBONATE
  22. POTASSIUM CITRATE. [Concomitant]
     Active Substance: POTASSIUM CITRATE
  23. KLONOPIN [Concomitant]
     Active Substance: CLONAZEPAM
  24. DUONEB [Concomitant]
     Active Substance: ALBUTEROL SULFATE\IPRATROPIUM BROMIDE
  25. VITAMIN B12 [Concomitant]
     Active Substance: CYANOCOBALAMIN
  26. PREDNISOLONE. [Concomitant]
     Active Substance: PREDNISOLONE
  27. TIZANIDINE. [Concomitant]
     Active Substance: TIZANIDINE
  28. WELLBUTRIN [Concomitant]
     Active Substance: BUPROPION HYDROCHLORIDE
  29. BUPROPION. [Concomitant]
     Active Substance: BUPROPION
  30. SONATA [Concomitant]
     Active Substance: ZALEPLON
  31. VITAMIN D3 [Concomitant]
     Active Substance: CHOLECALCIFEROL
  32. HIZENTRA [Suspect]
     Active Substance: HUMAN IMMUNOGLOBULIN G
     Indication: IMMUNODEFICIENCY COMMON VARIABLE
     Dosage: AS DIRECTED, 1 GM 5 ML VIAL
     Route: 058
  33. TOVIAZ [Concomitant]
     Active Substance: FESOTERODINE FUMARATE
  34. VITAMIN B12 [Concomitant]
     Active Substance: CYANOCOBALAMIN
  35. ESTRADIOL. [Concomitant]
     Active Substance: ESTRADIOL
  36. MULTIVITAMINS [Concomitant]
     Active Substance: VITAMINS
  37. NASONEX [Concomitant]
     Active Substance: MOMETASONE FUROATE
  38. RIBOFLAVIN [Concomitant]
     Active Substance: RIBOFLAVIN
  39. ZITHROMAX [Concomitant]
     Active Substance: AZITHROMYCIN DIHYDRATE
  40. TESSALON [Concomitant]
     Active Substance: BENZONATATE
  41. TYLENOL WITH CODEINE [Concomitant]
     Active Substance: ACETAMINOPHEN\CODEINE PHOSPHATE
  42. BUSPIRONE [Concomitant]
     Active Substance: BUSPIRONE HYDROCHLORIDE
  43. FUROSEMIDE. [Concomitant]
     Active Substance: FUROSEMIDE
  44. MIRALAX [Concomitant]
     Active Substance: POLYETHYLENE GLYCOL 3350
  45. SYNTHROID [Concomitant]
     Active Substance: LEVOTHYROXINE SODIUM
  46. LOTRIMIN [Concomitant]
     Active Substance: CLOTRIMAZOLE
  47. VITAMIN B COMPLEX [Concomitant]
     Active Substance: CYANOCOBALAMIN\DEXPANTHENOL\NIACINAMIDE\PYRIDOXINE HYDROCHLORIDE\RIBOFLAVIN 5^-PHOSPHATE SODIUM\THIAMINE HYDROCHLORIDE\VITAMIN B COMPLEX

REACTIONS (2)
  - Infusion site warmth [Unknown]
  - Infusion site induration [Unknown]
